FAERS Safety Report 6543060-4 (Version None)
Quarter: 2010Q1

REPORT INFORMATION
  Report Type: 
  Country: None (occurrence: None)
  Receive Date: 20100114
  Receipt Date: 20091230
  Transmission Date: 20100710
  Serious: Yes (Life-Threatening, Hospitalization)
  Sender: FDA-Public Use
  Company Number: 2010SP000033

PATIENT
  Sex: Female

DRUGS (3)
  1. ALVESCO [Suspect]
     Dosage: 200 UG; ; INHALATION
     Route: 055
     Dates: start: 20091214, end: 20091216
  2. BABY ASPIRIN [Concomitant]
  3. ERYTHROMYCIN [Concomitant]

REACTIONS (3)
  - ANAPHYLACTIC REACTION [None]
  - LIP PAIN [None]
  - LIP SWELLING [None]
